FAERS Safety Report 4967142-3 (Version None)
Quarter: 2006Q2

REPORT INFORMATION
  Report Type: 
  Country: None (occurrence: None)
  Receive Date: 20060410
  Receipt Date: 20060329
  Transmission Date: 20061013
  Serious: Yes (Hospitalization)
  Sender: FDA-Public Use
  Company Number: PHEH2006US04179

PATIENT
  Age: 61 Year
  Sex: Male
  Weight: 105.22 kg

DRUGS (2)
  1. GLEEVEC [Suspect]
     Indication: CHRONIC MYELOID LEUKAEMIA
     Dosage: 400 MG, QD
     Route: 048
     Dates: start: 20051201, end: 20060101
  2. GLEEVEC [Suspect]
     Dates: start: 20060328, end: 20060328

REACTIONS (5)
  - CARDIAC FAILURE CONGESTIVE [None]
  - CELLULITIS [None]
  - HYPERGLYCAEMIA [None]
  - RASH [None]
  - RENAL FAILURE [None]
